FAERS Safety Report 20103593 (Version 1)
Quarter: 2021Q4

REPORT INFORMATION
  Report Type: Spontaneous
  Country: US (occurrence: None)
  Receive Date: 20211123
  Receipt Date: 20211123
  Transmission Date: 20220303
  Serious: No
  Sender: FDA-Public Use
  Company Number: None

PATIENT
  Age: 29 Year
  Sex: Female
  Weight: 56.25 kg

DRUGS (1)
  1. .DELTA.8-TETRAHYDROCANNABINOL\HERBALS [Suspect]
     Active Substance: .DELTA.8-TETRAHYDROCANNABINOL\HERBALS

REACTIONS (9)
  - Heart rate increased [None]
  - Paranoia [None]
  - Tachyphrenia [None]
  - Dysstasia [None]
  - Hallucination [None]
  - Insomnia [None]
  - Feeling abnormal [None]
  - Cognitive disorder [None]
  - Motor dysfunction [None]

NARRATIVE: CASE EVENT DATE: 20211119
